FAERS Safety Report 7183136-4 (Version None)
Quarter: 2010Q4

REPORT INFORMATION
  Report Type: 
  Country: None (occurrence: None)
  Receive Date: 20101208
  Receipt Date: 20101125
  Transmission Date: 20110411
  Serious: Yes (Hospitalization)
  Sender: FDA-Public Use
  Company Number: 010995

PATIENT
  Sex: Female
  Weight: 57.1 kg

DRUGS (12)
  1. CIMZIA [Suspect]
     Indication: RHEUMATOID ARTHRITIS
     Dosage: (200 MG 1X/2 WEEKS SUBCUTANEOUS) ; (200 MG 1X/2 WEEKS SUBCUTANEOUS)
     Route: 058
     Dates: start: 20090820, end: 20100415
  2. CIMZIA [Suspect]
     Indication: RHEUMATOID ARTHRITIS
     Dosage: (200 MG 1X/2 WEEKS SUBCUTANEOUS) ; (200 MG 1X/2 WEEKS SUBCUTANEOUS)
     Route: 058
     Dates: start: 20100416
  3. PREDNISOLONE [Suspect]
     Indication: RHEUMATOID ARTHRITIS
     Dosage: (2 MG ORAL) ; (2 MG ORAL)
     Route: 048
     Dates: start: 20090331, end: 20100416
  4. PREDNISOLONE [Suspect]
     Indication: RHEUMATOID ARTHRITIS
     Dosage: (2 MG ORAL) ; (2 MG ORAL)
     Route: 048
     Dates: start: 20100527
  5. VOLTAREN [Suspect]
     Indication: RHEUMATOID ARTHRITIS
     Dosage: (ADEQUATE DOSE, AS NEEDED TRANSDERMAL) ; (ADEQUATE DOSE TRANSDERMAL) ; (50 MG QD) ; (100 MG)
     Route: 062
     Dates: start: 20081224, end: 20100416
  6. VOLTAREN [Suspect]
     Indication: RHEUMATOID ARTHRITIS
     Dosage: (ADEQUATE DOSE, AS NEEDED TRANSDERMAL) ; (ADEQUATE DOSE TRANSDERMAL) ; (50 MG QD) ; (100 MG)
     Route: 062
     Dates: start: 20090528
  7. VOLTAREN [Suspect]
     Indication: RHEUMATOID ARTHRITIS
     Dosage: (ADEQUATE DOSE, AS NEEDED TRANSDERMAL) ; (ADEQUATE DOSE TRANSDERMAL) ; (50 MG QD) ; (100 MG)
     Route: 062
     Dates: start: 20100526
  8. VOLTAREN [Suspect]
     Indication: RHEUMATOID ARTHRITIS
     Dosage: (ADEQUATE DOSE, AS NEEDED TRANSDERMAL) ; (ADEQUATE DOSE TRANSDERMAL) ; (50 MG QD) ; (100 MG)
     Route: 062
     Dates: start: 20100820
  9. TRIAZOLAM [Concomitant]
  10. ROXATIDINE ACETATE HCL [Concomitant]
  11. ISONIAZID [Concomitant]
  12. PYRIDOXAL PHOSPHATE [Concomitant]

REACTIONS (3)
  - ARTHROPATHY [None]
  - RUPTURED CEREBRAL ANEURYSM [None]
  - SUBARACHNOID HAEMORRHAGE [None]
